FAERS Safety Report 11824871 (Version 1)
Quarter: 2015Q4

REPORT INFORMATION
  Report Type: Report from Study
  Country: US (occurrence: US)
  Receive Date: 20151210
  Receipt Date: 20151210
  Transmission Date: 20160305
  Serious: Yes (Other)
  Sender: FDA-Public Use
  Company Number: US-BRISTOL-MYERS SQUIBB COMPANY-13013008

PATIENT
  Age: 33 Year
  Sex: Female

DRUGS (7)
  1. EFAVIRENZ [Suspect]
     Active Substance: EFAVIRENZ
     Dosage: 600 MG, QD
     Route: 048
     Dates: start: 2004, end: 20050310
  2. COMBIVIR [Suspect]
     Active Substance: LAMIVUDINE\ZIDOVUDINE
     Dosage: 1 DF, BID
     Route: 048
     Dates: start: 20050401
  3. VIRACEPT [Suspect]
     Active Substance: NELFINAVIR MESYLATE
     Indication: HIV INFECTION
     Dosage: 625 MG, BID
     Route: 048
     Dates: start: 20050401
  4. EFAVIRENZ [Suspect]
     Active Substance: EFAVIRENZ
     Indication: HIV INFECTION
     Dosage: 600 MG, QD
     Route: 048
     Dates: end: 20050310
  5. VIRAMUNE [Suspect]
     Active Substance: NEVIRAPINE
     Dosage: 200 MG, BID
     Route: 048
     Dates: start: 20050401
  6. VIRAMUNE [Suspect]
     Active Substance: NEVIRAPINE
     Indication: HIV INFECTION
     Dosage: 200 MG, BID
     Route: 048
     Dates: start: 2004, end: 20050310
  7. COMBIVIR [Suspect]
     Active Substance: LAMIVUDINE\ZIDOVUDINE
     Indication: HIV INFECTION
     Dosage: 1 DF, BID
     Route: 048
     Dates: end: 20050310

REACTIONS (4)
  - Abortion spontaneous [Unknown]
  - Retained products of conception [Unknown]
  - Uterine dilation and curettage [Unknown]
  - Pregnancy [Recovered/Resolved]

NARRATIVE: CASE EVENT DATE: 2005
